FAERS Safety Report 22294845 (Version 1)
Quarter: 2023Q2

REPORT INFORMATION
  Report Type: Spontaneous
  Country: DE (occurrence: DE)
  Receive Date: 20230508
  Receipt Date: 20230508
  Transmission Date: 20230721
  Serious: Yes (Other)
  Sender: FDA-Public Use
  Company Number: DE-Shilpa Medicare Limited-SML-DE-2023-00521

PATIENT

DRUGS (8)
  1. TACROLIMUS [Suspect]
     Active Substance: TACROLIMUS
     Indication: Chronic granulomatous disease
     Dosage: UNK
  2. AZATHIOPRINE [Suspect]
     Active Substance: AZATHIOPRINE
     Indication: Chronic granulomatous disease
     Dosage: UNK
  3. CYCLOSPORINE [Suspect]
     Active Substance: CYCLOSPORINE
     Indication: Chronic granulomatous disease
     Dosage: UNK
  4. FLUDARABINE [Suspect]
     Active Substance: FLUDARABINE PHOSPHATE
     Indication: Chronic granulomatous disease
     Dosage: UNK
  5. MELPHALAN [Suspect]
     Active Substance: MELPHALAN
     Indication: Chronic granulomatous disease
     Dosage: UNK
  6. METHOTREXATE [Suspect]
     Active Substance: METHOTREXATE
     Indication: Chronic granulomatous disease
     Dosage: UNK
  7. SIROLIMUS [Suspect]
     Active Substance: SIROLIMUS
     Indication: Chronic granulomatous disease
     Dosage: UNK
  8. THIOTEPA [Suspect]
     Active Substance: THIOTEPA
     Indication: Chronic granulomatous disease
     Dosage: UNK

REACTIONS (3)
  - Graft versus host disease in eye [Recovered/Resolved]
  - Drug ineffective [Unknown]
  - Off label use [Unknown]
